FAERS Safety Report 25592129 (Version 1)
Quarter: 2025Q3

REPORT INFORMATION
  Report Type: Report from Study
  Country: US (occurrence: US)
  Receive Date: 20250722
  Receipt Date: 20250722
  Transmission Date: 20251021
  Serious: Yes (Hospitalization, Other)
  Sender: GILEAD
  Company Number: US-GILEAD-2025-0720928

PATIENT
  Age: 76 Year
  Sex: Female

DRUGS (10)
  1. AMBRISENTAN [Suspect]
     Active Substance: AMBRISENTAN
     Indication: Pulmonary arterial hypertension
     Dosage: 10 MG, QD
     Route: 048
     Dates: start: 20180125
  2. BUMETANIDE [Concomitant]
     Active Substance: BUMETANIDE
  3. DULOXETINE [Concomitant]
     Active Substance: DULOXETINE
  4. FLECAINIDE [Concomitant]
     Active Substance: FLECAINIDE
  5. HYDRALAZINE [Concomitant]
     Active Substance: HYDRALAZINE HYDROCHLORIDE
  6. HYDROCODONE [Concomitant]
     Active Substance: HYDROCODONE
  7. METHYLPREDNISOLONE [Concomitant]
     Active Substance: METHYLPREDNISOLONE
  8. NIACIN [Concomitant]
     Active Substance: NIACIN
  9. POTASSIUM [Concomitant]
     Active Substance: POTASSIUM
  10. SILDENAFIL [Concomitant]
     Active Substance: SILDENAFIL
     Dosage: 10 MG, QD
     Route: 048

REACTIONS (5)
  - Skull fracture [Not Recovered/Not Resolved]
  - Contusion [Not Recovered/Not Resolved]
  - Haemorrhage [Not Recovered/Not Resolved]
  - Fall [Not Recovered/Not Resolved]
  - Product dose omission issue [Not Recovered/Not Resolved]

NARRATIVE: CASE EVENT DATE: 20180125
